APPROVED DRUG PRODUCT: DEXTROAMPHETAMINE SULFATE
Active Ingredient: DEXTROAMPHETAMINE SULFATE
Strength: 10MG
Dosage Form/Route: TABLET;ORAL
Application: A202893 | Product #002 | TE Code: AA
Applicant: AUROLIFE PHARMA LLC
Approved: Jul 31, 2013 | RLD: No | RS: No | Type: RX